FAERS Safety Report 6239809-0 (Version None)
Quarter: 2009Q2

REPORT INFORMATION
  Report Type: 
  Country: None (occurrence: None)
  Receive Date: 20090618
  Receipt Date: 20090618
  Transmission Date: 20091009
  Serious: No
  Sender: FDA-Public Use
  Company Number: None

PATIENT
  Age: 66 Year
  Sex: Female

DRUGS (10)
  1. PHENOBARBITAL 30 MG WEST WARD [Suspect]
     Indication: CONVULSION
     Dosage: 1 TABLET BY MOUTH TWICE DAILY
     Route: 048
     Dates: start: 20090201
  2. TRAXENE [Concomitant]
  3. SYNTHROID [Concomitant]
  4. RAMPRIL [Concomitant]
  5. INDERAL LA [Concomitant]
  6. ALLOPURINOL [Concomitant]
  7. ZOCOR [Concomitant]
  8. KLOR-CON [Concomitant]
  9. HYDROCHLOROTHIAZIDE [Concomitant]
  10. DEPAKOTE [Concomitant]

REACTIONS (1)
  - ANTICONVULSANT DRUG LEVEL DECREASED [None]
